FAERS Safety Report 15532776 (Version 3)
Quarter: 2018Q4

REPORT INFORMATION
  Report Type: Report from Study
  Country: US (occurrence: US)
  Receive Date: 20181019
  Receipt Date: 20181221
  Transmission Date: 20190205
  Serious: Yes (Other)
  Sender: FDA-Public Use
  Company Number: PHEH2018US043358

PATIENT
  Sex: Male

DRUGS (1)
  1. AFINITOR [Suspect]
     Active Substance: EVEROLIMUS
     Indication: CARCINOID TUMOUR
     Dosage: 10 MG, UNK
     Route: 048

REACTIONS (8)
  - Malignant neoplasm progression [Unknown]
  - Anxiety [Unknown]
  - Asthenia [Unknown]
  - Diarrhoea [Unknown]
  - Drug ineffective [Unknown]
  - Depression [Unknown]
  - Product use in unapproved indication [Unknown]
  - Metastases to kidney [Unknown]
